FAERS Safety Report 8699207 (Version 2)
Quarter: 2012Q4

REPORT INFORMATION
  Report Type: 
  Country: US (occurrence: US)
  Receive Date: 20120802
  Receipt Date: 20120830
  Transmission Date: 20130627
  Serious: Yes (Other)
  Sender: FDA-Public Use
  Company Number: PHEH2012US014927

PATIENT
  Age: 89 Year
  Sex: Male

DRUGS (6)
  1. DIOVAN [Suspect]
     Dosage: 160 mg, BID
  2. BYSTOLIC [Concomitant]
     Dosage: 15 mg, UNK
  3. SYMBICORT [Concomitant]
     Dosage: UNK UKN, UNK
  4. SPIRIVA [Concomitant]
     Dosage: UNK UKN, UNK
  5. TERAZOSIN [Concomitant]
     Dosage: UNK UKN, UNK
  6. CLONIDINE [Concomitant]
     Dosage: 0.1 mg, UNK

REACTIONS (1)
  - Aortic dissection [Unknown]
